FAERS Safety Report 21379772 (Version 2)
Quarter: 2022Q4

REPORT INFORMATION
  Report Type: Report from Study
  Country: AR (occurrence: AR)
  Receive Date: 20220927
  Receipt Date: 20221006
  Transmission Date: 20230112
  Serious: Yes (Other)
  Sender: FDA-Public Use
  Company Number: AR-BRISTOL-MYERS SQUIBB COMPANY-2022-111479

PATIENT
  Age: 77 Year
  Sex: Female
  Weight: 72 kg

DRUGS (1)
  1. ELIQUIS [Suspect]
     Active Substance: APIXABAN
     Indication: Cerebrovascular accident prophylaxis
     Route: 065
     Dates: start: 20200930

REACTIONS (2)
  - Limb injury [Unknown]
  - Gastrointestinal stromal tumour [Unknown]

NARRATIVE: CASE EVENT DATE: 20210101
